FAERS Safety Report 26000401 (Version 1)
Quarter: 2025Q4

REPORT INFORMATION
  Report Type: Spontaneous
  Country: US (occurrence: US)
  Receive Date: 20251105
  Receipt Date: 20251105
  Transmission Date: 20260117
  Serious: No
  Sender: ANI
  Company Number: US-ANIPHARMA-2025-US-036933

PATIENT
  Age: 38 Year
  Sex: Female
  Weight: 62.6 kg

DRUGS (5)
  1. CORTICOTROPIN [Suspect]
     Active Substance: CORTICOTROPIN
     Indication: Multiple sclerosis relapse
     Dosage: 80 UNITS DAILY FOR FLARE
     Route: 058
     Dates: start: 20250723, end: 20250802
  2. ALBUTEROL [Concomitant]
     Active Substance: ALBUTEROL
  3. METOPROLOL [Concomitant]
     Active Substance: METOPROLOL
  4. TERIFLUNOMIDE [Concomitant]
     Active Substance: TERIFLUNOMIDE
  5. VITAMIN D3 [Concomitant]
     Active Substance: CHOLECALCIFEROL

REACTIONS (4)
  - Night sweats [Recovered/Resolved]
  - Swelling [Recovering/Resolving]
  - Heart rate increased [Recovered/Resolved]
  - Hypersensitivity [Recovering/Resolving]

NARRATIVE: CASE EVENT DATE: 20250731
